FAERS Safety Report 8502313-0 (Version None)
Quarter: 2012Q3

REPORT INFORMATION
  Report Type: 
  Country: None (occurrence: None)
  Receive Date: 20120711
  Receipt Date: 20120612
  Transmission Date: 20120928
  Serious: No
  Sender: FDA-Public Use
  Company Number: US-COVIDIEN/TYCO HEALTHCARE/MALLINCKRODT-T201202567

PATIENT
  Sex: Male

DRUGS (2)
  1. HYDROCODONE BITARTRATE + ACETAMINOPHEN [Concomitant]
     Indication: BREAKTHROUGH PAIN
     Dosage: UNK
  2. OXYCODONE HCL [Suspect]
     Indication: PAIN
     Dosage: 15 MG QID
     Dates: start: 20120601

REACTIONS (1)
  - HEADACHE [None]
